FAERS Safety Report 8322947 (Version 2)
Quarter: 2019Q3

REPORT INFORMATION
  Report Type: Spontaneous
  Country: FR (occurrence: FR)
  Receive Date: 20120105
  Receipt Date: 20190830
  Transmission Date: 20191005
  Serious: Yes (Death, Other)
  Sender: FDA-Public Use
  Company Number: FR-GLAXOSMITHKLINE-A0959956A

PATIENT
  Age: 31 Year
  Sex: Male

DRUGS (5)
  1. NICORETTE [Suspect]
     Active Substance: NICOTINE
     Indication: SMOKING CESSATION THERAPY
     Dosage: 2 MG, PRN
     Route: 002
     Dates: start: 20080526
  2. CHAMPIX [Suspect]
     Active Substance: VARENICLINE TARTRATE
     Indication: SMOKING CESSATION THERAPY
     Dosage: 0.5 MG, 2X/DAY,
     Route: 048
     Dates: start: 20080529, end: 20080601
  3. CHAMPIX [Suspect]
     Active Substance: VARENICLINE TARTRATE
     Dosage: 0.5 MG, 1X/DAY
     Route: 048
     Dates: start: 20080526, end: 20080528
  4. CHANTIX [Suspect]
     Active Substance: VARENICLINE TARTRATE
     Indication: SMOKING CESSATION THERAPY
     Route: 048
     Dates: start: 20080526
  5. CHAMPIX [Suspect]
     Active Substance: VARENICLINE TARTRATE
     Dosage: 1 MG, 2X/DAY, THERAPY END DATE //2008
     Route: 048
     Dates: start: 20080602

REACTIONS (8)
  - Palpitations [Unknown]
  - Irritability [Unknown]
  - Myocarditis [Fatal]
  - Cardiac failure [Fatal]
  - Hypertension [Unknown]
  - Myocardial fibrosis [Unknown]
  - Hypercholesterolaemia [Unknown]
  - Stress [Unknown]

NARRATIVE: CASE EVENT DATE: 20080719
